FAERS Safety Report 4489874-6 (Version None)
Quarter: 2004Q4

REPORT INFORMATION
  Report Type: 
  Country: None (occurrence: None)
  Receive Date: 20041101
  Receipt Date: 20041020
  Transmission Date: 20050328
  Serious: Yes (Hospitalization)
  Sender: FDA-Public Use
  Company Number: IT-BRISTOL-MYERS SQUIBB COMPANY-12744488

PATIENT
  Age: 54 Year
  Sex: Female

DRUGS (2)
  1. CETUXIMAB [Suspect]
     Indication: COLORECTAL CANCER METASTATIC
     Dosage: MOST RECENT INFUSION 19-OCT-04 (10TH INFUSION)
     Route: 041
     Dates: start: 20040810
  2. IRINOTECAN [Suspect]
     Indication: COLORECTAL CANCER METASTATIC
     Dosage: MOST RECENT INFUSION 19-OCT-04 (5TH INFUSION)
     Route: 042
     Dates: start: 20040810

REACTIONS (1)
  - TRANSIENT ISCHAEMIC ATTACK [None]
